FAERS Safety Report 6440415-3 (Version None)
Quarter: 2009Q4

REPORT INFORMATION
  Report Type: 
  Country: None (occurrence: None)
  Receive Date: 20091113
  Receipt Date: 20091016
  Transmission Date: 20100525
  Serious: Yes (Hospitalization)
  Sender: FDA-Public Use
  Company Number: FR-PFIZER INC-2009265901

PATIENT
  Age: 72 Year
  Sex: Male

DRUGS (3)
  1. EPIRUBICIN HCL [Suspect]
     Indication: GASTRIC CANCER
     Dosage: 85 MG, CYCLIC
     Dates: start: 20060721
  2. CISPLATIN [Suspect]
     Indication: GASTRIC CANCER
     Dosage: 100 MG, CYCLIC
     Dates: start: 20060721
  3. CAPECITABINE [Suspect]
     Indication: GASTRIC CANCER
     Dosage: 49000 MG, CYCLIC
     Dates: start: 20060721

REACTIONS (2)
  - GENERAL PHYSICAL HEALTH DETERIORATION [None]
  - RENAL FAILURE [None]
